FAERS Safety Report 8020362-6 (Version None)
Quarter: 2012Q1

REPORT INFORMATION
  Report Type: 
  Country: None (occurrence: None)
  Receive Date: 20120103
  Receipt Date: 20111221
  Transmission Date: 20120608
  Serious: Yes (Hospitalization, Other)
  Sender: FDA-Public Use
  Company Number: US-ELI_LILLY_AND_COMPANY-US201112007206

PATIENT
  Sex: Female

DRUGS (9)
  1. FORTEO [Suspect]
     Indication: OSTEOPOROSIS
     Dosage: 20 UG, QD
     Dates: start: 20110601
  2. FERROUS SULFATE TAB [Concomitant]
     Indication: ANAEMIA
  3. PRILOSEC [Concomitant]
     Dosage: UNK, QD
  4. CALCIUM 600 PLUS VITAMIN D [Concomitant]
  5. MULTI-VITAMIN [Concomitant]
  6. FORTEO [Suspect]
     Dosage: 20 UG, QD
  7. ATENOLOL [Concomitant]
     Dosage: 25 MG, QD
  8. FISH OIL [Concomitant]
  9. ASPIRIN [Concomitant]
     Dosage: 81 MG, UNK

REACTIONS (2)
  - FEMUR FRACTURE [None]
  - HIP ARTHROPLASTY [None]
